FAERS Safety Report 5285388-4 (Version None)
Quarter: 2007Q1

REPORT INFORMATION
  Report Type: 
  Country: None (occurrence: None)
  Receive Date: 20070328
  Receipt Date: 20070315
  Transmission Date: 20070707
  Serious: Yes (Other)
  Sender: FDA-Public Use
  Company Number: 230001M07GRC

PATIENT
  Age: 27 Year
  Sex: Female

DRUGS (1)
  1. REBIF [Suspect]
     Indication: MULTIPLE SCLEROSIS
     Dosage: 44 MCG, 1 IN 2 DAYS, SUBCUTANEOUS
     Route: 058
     Dates: start: 20001101

REACTIONS (2)
  - INJECTION SITE EROSION [None]
  - INJECTION SITE EXTRAVASATION [None]
